FAERS Safety Report 7434434-8 (Version None)
Quarter: 2011Q2

REPORT INFORMATION
  Report Type: 
  Country: None (occurrence: None)
  Receive Date: 20110425
  Receipt Date: 20110421
  Transmission Date: 20111010
  Serious: Yes (Death)
  Sender: FDA-Public Use
  Company Number: PHHY2011CA28173

PATIENT
  Sex: Female

DRUGS (5)
  1. ACLASTA [Suspect]
     Indication: OSTEOPOROSIS
     Dosage: 5 MG, UNK
     Route: 042
     Dates: start: 20100623
  2. ASPIRIN [Concomitant]
  3. AVAPRO [Concomitant]
  4. ARTHROTEC [Concomitant]
  5. ACETAMINOPHEN [Concomitant]

REACTIONS (2)
  - DEATH [None]
  - MALAISE [None]
